FAERS Safety Report 6931891-8 (Version None)
Quarter: 2010Q3

REPORT INFORMATION
  Report Type: 
  Country: None (occurrence: None)
  Receive Date: 20100819
  Receipt Date: 20100812
  Transmission Date: 20110219
  Serious: No
  Sender: FDA-Public Use
  Company Number: US-ROXANE LABORATORIES, INC.-2010-RO-01091RO

PATIENT
  Sex: Female

DRUGS (4)
  1. DEXAMETHASONE [Suspect]
     Indication: BACK PAIN
     Dosage: 4 MG
     Route: 048
     Dates: start: 20100510, end: 20100531
  2. SIMVASTATIN [Concomitant]
  3. VISA [Concomitant]
  4. DIURETIC [Concomitant]

REACTIONS (1)
  - OEDEMA PERIPHERAL [None]
